FAERS Safety Report 4536587-8 (Version None)
Quarter: 2004Q4

REPORT INFORMATION
  Report Type: 
  Country: None (occurrence: None)
  Receive Date: 20041220
  Receipt Date: 20041203
  Transmission Date: 20050328
  Serious: Yes (Other)
  Sender: FDA-Public Use
  Company Number: USA-2004-0016449

PATIENT
  Age: 49 Year
  Sex: Male

DRUGS (13)
  1. OXYCONTIN [Suspect]
     Indication: PAIN
     Dosage: 40 MG QID
  2. OXYCODONE HCL [Concomitant]
  3. SENOKOT (SNNOSIDE A+B) [Concomitant]
  4. PAXIL [Concomitant]
  5. AMBIEN [Concomitant]
  6. TOPAMAX [Concomitant]
  7. KLONOPIN [Concomitant]
  8. DILANTIN [Concomitant]
  9. ATIVAN [Concomitant]
  10. PERCOCET [Concomitant]
  11. PAMELOR [Concomitant]
  12. XANAX [Concomitant]
  13. PEPCID [Concomitant]

REACTIONS (28)
  - APATHY [None]
  - ASTHENIA [None]
  - BACK PAIN [None]
  - BUTTOCK PAIN [None]
  - CONSTIPATION [None]
  - DECREASED ACTIVITY [None]
  - DEPRESSION [None]
  - DRUG DEPENDENCE [None]
  - DRUG INEFFECTIVE [None]
  - DRUG WITHDRAWAL SYNDROME [None]
  - DYSPEPSIA [None]
  - EMOTIONAL DISTRESS [None]
  - ERECTILE DYSFUNCTION [None]
  - FATIGUE [None]
  - HEADACHE [None]
  - HYPERSOMNIA [None]
  - INSOMNIA [None]
  - INTENTIONAL MISUSE [None]
  - LETHARGY [None]
  - LIBIDO DECREASED [None]
  - OVERDOSE [None]
  - PAIN [None]
  - PAIN EXACERBATED [None]
  - PAIN IN EXTREMITY [None]
  - SEXUAL DYSFUNCTION [None]
  - SOMNOLENCE [None]
  - STUPOR [None]
  - SUICIDAL IDEATION [None]
